FAERS Safety Report 4705831-6 (Version None)
Quarter: 2005Q3

REPORT INFORMATION
  Report Type: 
  Country: None (occurrence: None)
  Receive Date: 20050701
  Receipt Date: 20050624
  Transmission Date: 20060218
  Serious: Yes (Life-Threatening, Hospitalization, Other)
  Sender: FDA-Public Use
  Company Number: GB-ABBOTT-05P-167-0304081-00

PATIENT
  Age: 62 Year
  Sex: Female

DRUGS (12)
  1. VALPROATE SODIUM [Suspect]
     Indication: DRUG USE FOR UNKNOWN INDICATION
     Dates: end: 20030727
  2. VALPROATE SODIUM [Suspect]
     Dates: start: 20030301, end: 20030401
  3. VALPROATE SODIUM [Suspect]
     Dates: start: 20030501
  4. VALPROATE SODIUM [Suspect]
     Dates: end: 20030727
  5. VENLAFAXINE HCL [Suspect]
     Indication: DEPRESSION
     Dates: start: 20030101
  6. VENLAFAXINE HCL [Suspect]
     Dates: end: 20030401
  7. VENLAFAXINE HCL [Suspect]
     Dates: start: 20030501
  8. BENDROFLUMETHIAZIDE [Concomitant]
     Indication: DRUG USE FOR UNKNOWN INDICATION
     Route: 048
  9. SPIRONOLACTONE [Concomitant]
     Indication: DRUG USE FOR UNKNOWN INDICATION
     Route: 048
  10. MIRTAZAPINE [Concomitant]
     Indication: DRUG USE FOR UNKNOWN INDICATION
     Dates: start: 20030401
  11. SERTRALINE HCL [Concomitant]
     Indication: DRUG USE FOR UNKNOWN INDICATION
     Dates: start: 20030101, end: 20030101
  12. LORAZEPAM [Concomitant]
     Indication: DRUG USE FOR UNKNOWN INDICATION
     Dates: end: 20030727

REACTIONS (6)
  - CEREBRAL VENTRICLE DILATATION [None]
  - COORDINATION ABNORMAL [None]
  - EYE MOVEMENT DISORDER [None]
  - MOBILITY DECREASED [None]
  - MUSCLE RIGIDITY [None]
  - NORMAL PRESSURE HYDROCEPHALUS [None]
